FAERS Safety Report 10272661 (Version 4)
Quarter: 2015Q1

REPORT INFORMATION
  Report Type: Spontaneous
  Country: BR (occurrence: BR)
  Receive Date: 20140702
  Receipt Date: 20150220
  Transmission Date: 20150720
  Serious: Yes (Other)
  Sender: FDA-Public Use
  Company Number: PHHY2014BR080983

PATIENT
  Sex: Male
  Weight: 56 kg

DRUGS (2)
  1. TEGRETOL [Suspect]
     Active Substance: CARBAMAZEPINE
     Indication: SEIZURE
     Dosage: 2 DF (2 TABLETS), DAILY
     Route: 048
  2. TOFRANIL [Suspect]
     Active Substance: IMIPRAMINE HYDROCHLORIDE
     Indication: SEIZURE
     Dosage: 2 DF (2 TABLETS), A DAY
     Route: 048

REACTIONS (3)
  - Seizure [Recovered/Resolved]
  - Product use issue [Unknown]
  - Tooth demineralisation [Not Recovered/Not Resolved]
